FAERS Safety Report 6329752-0 (Version None)
Quarter: 2009Q3

REPORT INFORMATION
  Report Type: 
  Country: None (occurrence: None)
  Receive Date: 20090826
  Receipt Date: 20090819
  Transmission Date: 20100115
  Serious: Yes (Disabling)
  Sender: FDA-Public Use
  Company Number: GB-TEVA-206735ISR

PATIENT
  Age: 65 Year
  Sex: Female
  Weight: 92 kg

DRUGS (2)
  1. SIMVASTATIN [Suspect]
  2. SITAGLIPTIN [Suspect]
     Indication: DIABETES MELLITUS
     Route: 048
     Dates: start: 20080812, end: 20090518

REACTIONS (12)
  - ARTHRALGIA [None]
  - DIABETIC EYE DISEASE [None]
  - INTRAOCULAR PRESSURE DECREASED [None]
  - LACRIMATION DECREASED [None]
  - MACULOPATHY [None]
  - MALAISE [None]
  - MEIBOMIANITIS [None]
  - MYALGIA [None]
  - NAUSEA [None]
  - RETINAL EXUDATES [None]
  - RETINAL HAEMORRHAGE [None]
  - VISION BLURRED [None]
